FAERS Safety Report 6554334-5 (Version None)
Quarter: 2010Q1

REPORT INFORMATION
  Report Type: 
  Country: None (occurrence: None)
  Receive Date: 20100127
  Receipt Date: 20100125
  Transmission Date: 20100710
  Serious: Yes (Other)
  Sender: FDA-Public Use
  Company Number: A0841240A

PATIENT
  Age: 69 Year
  Sex: Male

DRUGS (6)
  1. LOVAZA [Suspect]
     Indication: BLOOD CHOLESTEROL INCREASED
     Dosage: 2CAP AT NIGHT
     Route: 048
     Dates: start: 20090605
  2. MULTI-VITAMIN [Concomitant]
  3. CALCIUM [Concomitant]
  4. BABY ASPIRIN [Concomitant]
  5. MAGNESIUM [Concomitant]
  6. GLUCOSAMINE [Concomitant]

REACTIONS (2)
  - ALANINE AMINOTRANSFERASE INCREASED [None]
  - ASPARTATE AMINOTRANSFERASE INCREASED [None]
